FAERS Safety Report 4878727-7 (Version None)
Quarter: 2005Q4

REPORT INFORMATION
  Report Type: 
  Country: None (occurrence: None)
  Receive Date: 20051209
  Receipt Date: 20050509
  Transmission Date: 20060501
  Serious: Yes (Death, Other)
  Sender: FDA-Public Use
  Company Number: USA-2004-0017963

PATIENT
  Age: 21 Month
  Sex: Female
  Weight: 11.8 kg

DRUGS (3)
  1. OXYCONTIN [Suspect]
     Dosage: 40 MG
  2. ATROPINE [Suspect]
  3. OXYMORPHONE HYDROCHLORIDE [Suspect]

REACTIONS (7)
  - COMA [None]
  - DYSPNOEA [None]
  - FEELING ABNORMAL [None]
  - LOSS OF CONSCIOUSNESS [None]
  - OVERDOSE [None]
  - PYREXIA [None]
  - RESPIRATORY ARREST [None]
